FAERS Safety Report 9186990 (Version 1)
Quarter: 2013Q1

REPORT INFORMATION
  Report Type: Spontaneous
  Country: FR (occurrence: FR)
  Receive Date: 20130325
  Receipt Date: 20130325
  Transmission Date: 20140127
  Serious: Yes (Hospitalization)
  Sender: FDA-Public Use
  Company Number: FR-PFIZER INC-2013090026

PATIENT
  Age: 80 Year
  Sex: Male

DRUGS (8)
  1. ZYVOXID [Suspect]
     Dosage: 1200 MG, DAILY
     Route: 048
     Dates: start: 20121119, end: 20121205
  2. RIMACTANE [Suspect]
     Dosage: 2 DF, DAILY
     Route: 048
     Dates: start: 20121112, end: 20121205
  3. SELOKEN [Concomitant]
  4. ALLOPURINOL [Concomitant]
  5. NAFTIDROFURYL [Concomitant]
  6. GLUCOPHAGE [Concomitant]
  7. HEXAQUINE [Concomitant]
  8. LANTUS [Concomitant]

REACTIONS (6)
  - Drug reaction with eosinophilia and systemic symptoms [Recovered/Resolved]
  - Face oedema [Recovered/Resolved]
  - Tongue oedema [Recovered/Resolved]
  - Rash erythematous [Recovered/Resolved]
  - Rash papular [Recovered/Resolved]
  - Rash pruritic [Recovered/Resolved]
